FAERS Safety Report 6004038-2 (Version None)
Quarter: 2008Q4

REPORT INFORMATION
  Report Type: 
  Country: None (occurrence: None)
  Receive Date: 20081216
  Receipt Date: 20081212
  Transmission Date: 20090506
  Serious: Yes (Death)
  Sender: FDA-Public Use
  Company Number: A0760419A

PATIENT
  Sex: Male

DRUGS (1)
  1. ALKERAN [Suspect]
     Dosage: 50MG PER DAY
     Route: 058

REACTIONS (3)
  - ABDOMINAL PAIN [None]
  - DEATH [None]
  - SHOCK [None]
